FAERS Safety Report 10446991 (Version 2)
Quarter: 2014Q3

REPORT INFORMATION
  Report Type: Report from Study
  Country: MX (occurrence: MX)
  Receive Date: 20140911
  Receipt Date: 20140911
  Transmission Date: 20150326
  Serious: Yes (Other)
  Sender: FDA-Public Use
  Company Number: PHHY2013MX129352

PATIENT
  Sex: Female

DRUGS (1)
  1. GLIVEC [Suspect]
     Active Substance: IMATINIB MESYLATE
     Indication: CHRONIC MYELOID LEUKAEMIA
     Dosage: 400 MG, DAILY

REACTIONS (4)
  - Maternal exposure during pregnancy [Unknown]
  - Gestational diabetes [Unknown]
  - Blood pressure increased [Unknown]
  - Premature labour [Unknown]
